FAERS Safety Report 8075889-8 (Version None)
Quarter: 2012Q1

REPORT INFORMATION
  Report Type: 
  Country: None (occurrence: None)
  Receive Date: 20120127
  Receipt Date: 20120126
  Transmission Date: 20120608
  Serious: No
  Sender: FDA-Public Use
  Company Number: US-BAYER-2012-008663

PATIENT
  Sex: Female
  Weight: 65.76 kg

DRUGS (7)
  1. BETASERON [Suspect]
     Dosage: 0.25 MG, UNK
     Route: 058
  2. BACLOFEN [Concomitant]
     Dosage: 10 MG, UNK
  3. VITAMIN B-12 [Concomitant]
     Dosage: 1000 UNK, UNK
  4. IBUPROFEN [Concomitant]
     Dosage: 200 MG, UNK
  5. VITAMIN D [Concomitant]
     Dosage: 1000 U, UNK
  6. ALPRAZOLAM [Concomitant]
     Dosage: 0.25 MG, UNK
  7. IRON [Concomitant]

REACTIONS (2)
  - INJECTION SITE REACTION [None]
  - INFLUENZA LIKE ILLNESS [None]
